FAERS Safety Report 5826830-7 (Version None)
Quarter: 2008Q3

REPORT INFORMATION
  Report Type: 
  Country: None (occurrence: None)
  Receive Date: 20080729
  Receipt Date: 20080729
  Transmission Date: 20090109
  Serious: Yes (Hospitalization)
  Sender: FDA-Public Use
  Company Number: None

PATIENT
  Sex: Male
  Weight: 92.0802 kg

DRUGS (2)
  1. REVLIMID [Suspect]
     Indication: LYMPHOMA
     Dosage: REVLIMID DAYS 1-21 ORAL
     Route: 048
     Dates: start: 20080618, end: 20080708
  2. REVLIMID [Suspect]
     Indication: RECURRENT CANCER
     Dosage: REVLIMID DAYS 1-21 ORAL
     Route: 048
     Dates: start: 20080618, end: 20080708

REACTIONS (4)
  - ASTHENIA [None]
  - BRONCHOSCOPY ABNORMAL [None]
  - COUGH [None]
  - PSEUDOMONAS INFECTION [None]
